FAERS Safety Report 4342993-7 (Version None)
Quarter: 2004Q2

REPORT INFORMATION
  Report Type: 
  Country: None (occurrence: None)
  Receive Date: 20040416
  Receipt Date: 20040412
  Transmission Date: 20050107
  Serious: Yes (Other)
  Sender: FDA-Public Use
  Company Number: 200409022

PATIENT
  Age: 77 Year
  Sex: Female

DRUGS (6)
  1. STREPTOKINASE (STREPTOKINASE) (UNKNOWN) [Suspect]
     Indication: MYOCARDIAL INFARCTION
     Dosage: 1 MIU DAILY IV
     Route: 042
     Dates: start: 20040331, end: 20040331
  2. ASPIRIN [Suspect]
     Indication: MYOCARDIAL INFARCTION
  3. ENOXAPARIN OR PALCEBO VS. HEPARIN OR PLACEBO [Suspect]
     Indication: MYOCARDIAL INFARCTION
  4. HEPARIN [Suspect]
  5. PLACEBO [Suspect]
  6. IMDUR [Concomitant]

REACTIONS (4)
  - APHASIA [None]
  - HEMIPLEGIA [None]
  - HYPOTONIA [None]
  - TRANSIENT ISCHAEMIC ATTACK [None]
